FAERS Safety Report 5500961-3 (Version None)
Quarter: 2007Q4

REPORT INFORMATION
  Report Type: 
  Country: None (occurrence: None)
  Receive Date: 20071029
  Receipt Date: 20071022
  Transmission Date: 20080405
  Serious: Yes (Hospitalization, Other)
  Sender: FDA-Public Use
  Company Number: HQWYE505123FEB05

PATIENT
  Sex: Male
  Weight: 73.6 kg

DRUGS (27)
  1. SIROLIMUS [Suspect]
     Indication: PROPHYLAXIS AGAINST TRANSPLANT REJECTION
     Route: 048
     Dates: start: 20050131
  2. PREDNISONE [Suspect]
     Indication: PROPHYLAXIS AGAINST TRANSPLANT REJECTION
     Route: 065
  3. ATENOLOL [Concomitant]
     Route: 065
  4. MYCELEX [Concomitant]
     Dosage: UNKNOWN DOSE, TID
     Route: 065
  5. DARVOCET [Concomitant]
     Indication: PAIN
     Dosage: 100, 1 TABLET, Q 6 HRS PRN
     Route: 065
  6. FLONASE [Concomitant]
     Route: 045
  7. THERAGRAN-M [Concomitant]
     Dosage: UNKNOWN DOSE/FREQUENCY
     Route: 065
  8. PRAVACHOL [Concomitant]
     Route: 065
  9. COUMADIN [Concomitant]
     Route: 065
     Dates: end: 20050201
  10. COUMADIN [Concomitant]
     Route: 065
     Dates: start: 20050201
  11. CEFEPIME [Concomitant]
     Route: 042
     Dates: end: 20050223
  12. PROTONIX [Concomitant]
     Route: 065
     Dates: end: 20050201
  13. FLOMAX [Concomitant]
     Route: 065
  14. BACTRIM [Concomitant]
     Route: 065
  15. VALCYTE [Concomitant]
     Route: 065
  16. NEURONTIN [Concomitant]
     Route: 065
  17. ALBUTEROL [Concomitant]
     Route: 045
  18. CIPRO [Concomitant]
     Route: 065
     Dates: start: 20050209, end: 20050223
  19. SODIUM BICARBONATE [Concomitant]
     Route: 065
     Dates: end: 20050201
  20. SODIUM BICARBONATE [Concomitant]
     Route: 065
     Dates: start: 20050201
  21. LANTUS [Concomitant]
     Dosage: 10 UNIT EVERY 1 DAY
     Route: 058
  22. NOVOLOG [Concomitant]
     Dosage: SLIDING SCALE
     Route: 065
  23. AMPHOJEL [Concomitant]
     Dosage: UNKNOWN DOSE/FREQUENCY
     Route: 065
  24. NAFTIN [Concomitant]
     Dosage: UNKNOWN DOSE/FREQUENCY
     Route: 065
  25. MIRALAX [Concomitant]
     Dosage: UNKNOWN DOSE/FREQUENCY
     Route: 065
  26. PROGRAF [Suspect]
     Indication: PROPHYLAXIS AGAINST TRANSPLANT REJECTION
     Route: 065
     Dates: end: 20050201
  27. PROGRAF [Suspect]
     Route: 065
     Dates: start: 20050201

REACTIONS (2)
  - ATRIAL FIBRILLATION [None]
  - METABOLIC ENCEPHALOPATHY [None]
